FAERS Safety Report 15194492 (Version 2)
Quarter: 2018Q3

REPORT INFORMATION
  Report Type: Spontaneous
  Country: US (occurrence: US)
  Receive Date: 20180725
  Receipt Date: 20180816
  Transmission Date: 20181010
  Serious: No
  Sender: FDA-Public Use
  Company Number: US-LEXICON PHARMACEUTICALS, INC-18-1606-00812

PATIENT
  Sex: Male

DRUGS (12)
  1. CHOLESTYRAMINE. [Concomitant]
     Active Substance: CHOLESTYRAMINE
     Route: 048
  2. METFORMIN HYDROCHLORIDE. [Concomitant]
     Active Substance: METFORMIN HYDROCHLORIDE
     Route: 048
  3. WARFARIN SODIUM. [Concomitant]
     Active Substance: WARFARIN SODIUM
     Route: 048
  4. POTASSIUM CHLORIDE CRYS ER [Concomitant]
     Active Substance: POTASSIUM CHLORIDE
     Route: 048
  5. SANDOSTATIN LAR DEPOT [Concomitant]
     Active Substance: OCTREOTIDE ACETATE
     Route: 030
  6. NIFEDIPINE. [Concomitant]
     Active Substance: NIFEDIPINE
     Route: 048
  7. TELOTRISTAT ETHYL [Suspect]
     Active Substance: TELOTRISTAT ETHYL
     Indication: CARCINOID TUMOUR
  8. TELOTRISTAT ETHYL [Suspect]
     Active Substance: TELOTRISTAT ETHYL
     Indication: CARCINOID SYNDROME
     Route: 048
     Dates: start: 20180131
  9. ATENOLOL. [Concomitant]
     Active Substance: ATENOLOL
     Route: 048
  10. MAGNESIUM 27 [Concomitant]
     Route: 048
  11. LOPERAMIDE A?D [Concomitant]
     Route: 048
  12. LOSARTAN POTASSIUM. [Concomitant]
     Active Substance: LOSARTAN POTASSIUM

REACTIONS (7)
  - International normalised ratio decreased [Unknown]
  - Blood magnesium decreased [Recovering/Resolving]
  - Blood potassium decreased [Recovering/Resolving]
  - Off label use [Unknown]
  - Flushing [Unknown]
  - Peripheral swelling [Recovering/Resolving]
  - Nausea [Recovered/Resolved]

NARRATIVE: CASE EVENT DATE: 2018
